FAERS Safety Report 9688107 (Version 4)
Quarter: 2014Q2

REPORT INFORMATION
  Report Type: Spontaneous
  Country: GB (occurrence: GB)
  Receive Date: 20131114
  Receipt Date: 20140407
  Transmission Date: 20141212
  Serious: Yes (Hospitalization, Other)
  Sender: FDA-Public Use
  Company Number: GB-INCYTE CORPORATION-2013IN002659

PATIENT
  Sex: Male

DRUGS (3)
  1. JAKAVI [Suspect]
     Dosage: UNK UKN, UNK
     Route: 065
  2. JAKAVI [Suspect]
     Dosage: 15 MG, UNK
     Route: 065
  3. JAKAVI [Suspect]
     Dosage: 15 MG, BID
     Route: 065

REACTIONS (1)
  - Cardiac failure [Recovering/Resolving]
